FAERS Safety Report 9240157 (Version 2)
Quarter: 2013Q2

REPORT INFORMATION
  Report Type: Spontaneous
  Country: US (occurrence: None)
  Receive Date: 20130417
  Receipt Date: 20130429
  Transmission Date: 20140414
  Serious: Yes (Hospitalization)
  Sender: FDA-Public Use
  Company Number: KAD201304-000460

PATIENT
  Age: 61 Year
  Sex: Male

DRUGS (3)
  1. RIBAVIRIN (RIBAVIRIN) [Suspect]
     Indication: HEPATITIS C
     Dates: start: 2000
  2. PEGYLATED INTERFERON ALFA (PEGYLATED INTERFERON ALFA) [Suspect]
     Indication: HEPATITIS C
     Dates: start: 2000
  3. TELAPREVIR (TELAPREVIR) [Suspect]
     Indication: HEPATITIS C
     Dates: start: 201106, end: 201109

REACTIONS (1)
  - Myasthenia gravis crisis [None]
